FAERS Safety Report 5419445-6 (Version None)
Quarter: 2007Q3

REPORT INFORMATION
  Report Type: 
  Country: None (occurrence: None)
  Receive Date: 20070820
  Receipt Date: 20070813
  Transmission Date: 20080115
  Serious: Yes (Hospitalization)
  Sender: FDA-Public Use
  Company Number: B0482742A

PATIENT
  Age: 42 Year
  Sex: Female

DRUGS (4)
  1. PAROXETINE HCL [Suspect]
     Dosage: 20MG AT NIGHT
     Route: 048
     Dates: start: 20070301, end: 20070412
  2. TARDYFERON [Concomitant]
     Dosage: 80MG PER DAY
     Route: 048
     Dates: start: 20070416
  3. SURGESTONE [Concomitant]
     Route: 048
     Dates: end: 20070418
  4. SEROPLEX [Concomitant]
     Dosage: .5MG AT NIGHT
     Route: 065
     Dates: start: 20070412, end: 20070418

REACTIONS (8)
  - ANAEMIA [None]
  - ASTHENIA [None]
  - CONDITION AGGRAVATED [None]
  - CONJUNCTIVAL DISCOLOURATION [None]
  - DYSPNOEA [None]
  - GAIT DISTURBANCE [None]
  - MENORRHAGIA [None]
  - METRORRHAGIA [None]
